FAERS Safety Report 11132734 (Version 2)
Quarter: 2024Q2

REPORT INFORMATION
  Report Type: Spontaneous
  Country: FR (occurrence: FR)
  Receive Date: 20150522
  Receipt Date: 20240413
  Transmission Date: 20240716
  Serious: Yes (Other)
  Sender: FDA-Public Use
  Company Number: FR-SA-2015SA067627

PATIENT
  Age: 27 Year
  Sex: Male

DRUGS (2)
  1. RIFAMPIN [Suspect]
     Active Substance: RIFAMPIN
     Indication: Mycobacterium ulcerans infection
     Dosage: 10 MG/KG,QD
     Route: 048
  2. AMIKACIN SULFATE [Suspect]
     Active Substance: AMIKACIN SULFATE
     Indication: Mycobacterium ulcerans infection
     Dosage: 15 MG/KG,QD
     Route: 030

REACTIONS (4)
  - Mycobacterium ulcerans infection [Recovered/Resolved]
  - Condition aggravated [Recovered/Resolved]
  - Paradoxical drug reaction [Recovered/Resolved]
  - Skin lesion [Recovered/Resolved]
